FAERS Safety Report 23784651 (Version 1)
Quarter: 2024Q2

REPORT INFORMATION
  Report Type: Spontaneous
  Country: CN (occurrence: CN)
  Receive Date: 20240425
  Receipt Date: 20240425
  Transmission Date: 20240715
  Serious: Yes (Hospitalization, Other)
  Sender: FDA-Public Use
  Company Number: None

PATIENT
  Age: 65 Year
  Sex: Female
  Weight: 52 kg

DRUGS (6)
  1. IFOSFAMIDE [Suspect]
     Active Substance: IFOSFAMIDE
     Indication: Ovarian cancer
     Dosage: 2 G, ONE TIME IN ONE DAY (Q3W), DILUTED WITH 250 ML OF SODIUM CHLORIDE, SECOND CYCLE OF AI CHEMOTHER
     Route: 041
     Dates: start: 20240404, end: 20240407
  2. IFOSFAMIDE [Suspect]
     Active Substance: IFOSFAMIDE
     Indication: Ovarian cancer
     Dosage: FIRST CYCLE
     Route: 065
  3. SODIUM CHLORIDE [Suspect]
     Active Substance: SODIUM CHLORIDE
     Indication: Medication dilution
     Dosage: 250 ML, ONE TIME IN ONE DAY (Q3W), USED TO DILUTE 2 G IFOSFAMIDE, D1-4
     Route: 041
     Dates: start: 20240404, end: 20240407
  4. DEXTROSE [Suspect]
     Active Substance: DEXTROSE\DEXTROSE MONOHYDRATE
     Indication: Medication dilution
     Dosage: 100 ML, ONE TIME IN ONE DAY (Q3W), USED TO DILUTE 35 MG PIRARUBICIN HYDROCHLORIDE, D1-2
     Route: 041
     Dates: start: 20240404, end: 20240405
  5. PIRARUBICIN HYDROCHLORIDE [Suspect]
     Active Substance: PIRARUBICIN HYDROCHLORIDE
     Indication: Ovarian cancer
     Dosage: FIRST CYCLE
     Route: 065
  6. PIRARUBICIN HYDROCHLORIDE [Suspect]
     Active Substance: PIRARUBICIN HYDROCHLORIDE
     Dosage: 35 MG, ONE TIME IN ONE DAY (Q3W), DILUTED WITH 100 ML OF GLUCOSE, SECOND CYCLE OF AI CHEMOTHERAPY,
     Route: 041
     Dates: start: 20240404, end: 20240405

REACTIONS (2)
  - Myelosuppression [Recovered/Resolved]
  - Myelosuppression [Recovered/Resolved]

NARRATIVE: CASE EVENT DATE: 20240416
